FAERS Safety Report 4588355-9 (Version None)
Quarter: 2005Q1

REPORT INFORMATION
  Report Type: 
  Country: None (occurrence: None)
  Receive Date: 20050216
  Receipt Date: 20050216
  Transmission Date: 20050727
  Serious: Yes (Death)
  Sender: FDA-Public Use
  Company Number: None

PATIENT
  Age: 48 Year
  Sex: Male
  Weight: 77 kg

DRUGS (7)
  1. REMICADE [Suspect]
     Dosage: REMICADE 400 MG IV + REMICADE 300 MG IV
     Route: 042
     Dates: start: 20040707
  2. REMICADE [Suspect]
     Dosage: REMICADE 400 MG IV + REMICADE 300 MG IV
     Route: 042
     Dates: start: 20040723
  3. REMICADE [Suspect]
     Dosage: REMICADE 400 MG IV + REMICADE 300 MG IV
     Route: 042
     Dates: start: 20040825
  4. REMICADE [Suspect]
     Dosage: REMICADE 400 MG IV + REMICADE 300 MG IV
     Route: 042
     Dates: start: 20041006
  5. REMICADE [Suspect]
     Dosage: REMICADE 400 MG IV + REMICADE 300 MG IV
     Route: 042
     Dates: start: 20041117
  6. . [Concomitant]
  7. PREDNISONE [Suspect]
     Dates: start: 20050105

REACTIONS (2)
  - PNEUMONIA [None]
  - SUDDEN DEATH [None]
